FAERS Safety Report 8893157 (Version 1)
Quarter: 2012Q4

REPORT INFORMATION
  Report Type: Spontaneous
  Country: US (occurrence: None)
  Receive Date: 20121031
  Receipt Date: 20121031
  Transmission Date: 20130627
  Serious: Yes (Death)
  Sender: FDA-Public Use
  Company Number: 2012MA012492

PATIENT
  Age: 34 Year
  Sex: Male

DRUGS (9)
  1. LEVETIRACETAM [Suspect]
     Indication: CONVULSION PROPHYLAXIS
  2. AMITIPTYLINE [Concomitant]
  3. DIPHENHYDRAMINE [Concomitant]
  4. LAMOTRIGINE [Concomitant]
  5. MORPHINE [Concomitant]
  6. NORTRIPTYLINE [Concomitant]
  7. PREGABALIN [Concomitant]
  8. TRAZODONE [Concomitant]
  9. CHLOROPHENYLPIPERAZINE [Concomitant]

REACTIONS (1)
  - Toxicity to various agents [None]
